FAERS Safety Report 11801810 (Version 1)
Quarter: 2015Q4

REPORT INFORMATION
  Report Type: Report from Study
  Country: GB (occurrence: GB)
  Receive Date: 20151204
  Receipt Date: 20151204
  Transmission Date: 20160305
  Serious: Yes (Hospitalization)
  Sender: FDA-Public Use
  Company Number: GB-ABBVIE-15P-167-1509267-00

PATIENT
  Sex: Male

DRUGS (4)
  1. OMBITASVIR/PARITAPREVIR/RITONAVIR [Suspect]
     Active Substance: OMBITASVIR\PARITAPREVIR\RITONAVIR
     Indication: HEPATITIS C
     Route: 048
     Dates: start: 2015
  2. RIBAVIRIN. [Concomitant]
     Active Substance: RIBAVIRIN
     Indication: HEPATITIS C
     Route: 048
  3. DASABUVIR [Suspect]
     Active Substance: DASABUVIR
     Indication: HEPATITIS C
     Route: 048
     Dates: start: 2015
  4. RIBAVIRIN. [Concomitant]
     Active Substance: RIBAVIRIN
     Route: 048

REACTIONS (7)
  - Haemoglobin decreased [Unknown]
  - Dehydration [Unknown]
  - Glomerular filtration rate abnormal [Unknown]
  - Decreased appetite [Unknown]
  - Acute kidney injury [Unknown]
  - Nausea [Unknown]
  - Blood creatinine abnormal [Unknown]

NARRATIVE: CASE EVENT DATE: 20151123
